FAERS Safety Report 4353709-2 (Version None)
Quarter: 2004Q2

REPORT INFORMATION
  Report Type: 
  Country: None (occurrence: None)
  Receive Date: 20040430
  Receipt Date: 20040420
  Transmission Date: 20050107
  Serious: Yes (Death)
  Sender: FDA-Public Use
  Company Number: US-JNJFOC-20040404556

PATIENT
  Age: 25 Year
  Sex: Male

DRUGS (1)
  1. NIZORAL [Suspect]
     Dosage: 200 MG, 1 IN 1 DAY, ORAL
     Route: 048

REACTIONS (1)
  - CARCINOMA [None]
